FAERS Safety Report 23384949 (Version 3)
Quarter: 2024Q1

REPORT INFORMATION
  Report Type: Report from Study
  Country: CA (occurrence: CA)
  Receive Date: 20240109
  Receipt Date: 20240326
  Transmission Date: 20240410
  Serious: Yes (Hospitalization)
  Sender: FDA-Public Use
  Company Number: CA-JNJFOC-20230739935

PATIENT
  Age: 81 Year
  Sex: Female

DRUGS (1)
  1. SIMPONI [Suspect]
     Active Substance: GOLIMUMAB
     Indication: Rheumatoid arthritis
     Route: 058

REACTIONS (7)
  - Cardiac failure congestive [Not Recovered/Not Resolved]
  - Pneumonia [Unknown]
  - Pericardial effusion [Not Recovered/Not Resolved]
  - Pain [Unknown]
  - Goitre [Not Recovered/Not Resolved]
  - Musculoskeletal stiffness [Unknown]
  - Herpes zoster [Unknown]
